FAERS Safety Report 14832191 (Version 1)
Quarter: 2018Q2

REPORT INFORMATION
  Report Type: Spontaneous
  Country: DE (occurrence: DE)
  Receive Date: 20180501
  Receipt Date: 20180501
  Transmission Date: 20180711
  Serious: Yes (Hospitalization)
  Sender: FDA-Public Use
  Company Number: DE-SA-2018SA112928

PATIENT
  Age: 62 Year
  Sex: Male
  Weight: 60 kg

DRUGS (13)
  1. OMEPRAZOLE. [Concomitant]
     Active Substance: OMEPRAZOLE
     Route: 048
  2. ACETYLSALICYLSAEURE [Suspect]
     Active Substance: ASPIRIN
     Route: 048
  3. MIRTAZAPINE. [Concomitant]
     Active Substance: MIRTAZAPINE
     Route: 048
  4. MESALAZINE [Concomitant]
     Active Substance: MESALAMINE
     Dosage: 2-2-2-0
     Route: 048
  5. CARVEDILOL. [Concomitant]
     Active Substance: CARVEDILOL
     Dosage: 2-0-2-0
     Route: 048
  6. FENOTEROL W/IPRATROPIUM [Concomitant]
     Active Substance: FENOTEROL
     Dosage: 0.05/0.02 MG, METERED DOSE INHALER, RESPIRATORY INHALATION
  7. RAMIPRIL. [Concomitant]
     Active Substance: RAMIPRIL
     Route: 048
  8. TAMSULOSIN [Concomitant]
     Active Substance: TAMSULOSIN
     Route: 048
  9. ATORVASTATIN [Concomitant]
     Active Substance: ATORVASTATIN
     Route: 048
  10. ESCITALOPRAM [Concomitant]
     Active Substance: ESCITALOPRAM OXALATE
     Route: 048
  11. CLOPIDOGREL BISULFATE. [Suspect]
     Active Substance: CLOPIDOGREL BISULFATE
     Route: 048
  12. GLYCOPYRRONIUM BROMIDE/INDACATEROL MALEATE [Concomitant]
     Dosage: 85/43 ?G, 1-0-0-0 METERED DOSE INHALER, RESPIRATORY INHALER
     Route: 065
  13. RAMIPRIL. [Concomitant]
     Active Substance: RAMIPRIL
     Route: 048

REACTIONS (6)
  - Hypotension [Unknown]
  - Dizziness [Unknown]
  - Haematochezia [Unknown]
  - Angina pectoris [Unknown]
  - Gastrointestinal haemorrhage [Unknown]
  - Anaemia [Unknown]
